FAERS Safety Report 17675461 (Version 1)
Quarter: 2020Q2

REPORT INFORMATION
  Report Type: Spontaneous
  Country: US (occurrence: US)
  Receive Date: 20200415
  Receipt Date: 20200415
  Transmission Date: 20200714
  Serious: Yes (Hospitalization)
  Sender: FDA-Public Use
  Company Number: None

PATIENT
  Age: 65 Year
  Sex: Male

DRUGS (1)
  1. HEPARIN (HEPARIN NA 5000 UNT/0.5ML INJ, VIL,0.5ML) [Suspect]
     Active Substance: HEPARIN SODIUM
     Indication: DEEP VEIN THROMBOSIS
     Dates: start: 20190102, end: 20190117

REACTIONS (15)
  - Dyspnoea [None]
  - Pulmonary congestion [None]
  - Heparin-induced thrombocytopenia test positive [None]
  - Oxygen saturation decreased [None]
  - Pulseless electrical activity [None]
  - Stridor [None]
  - Cardiac arrest [None]
  - Procedural pneumothorax [None]
  - Thrombocytopenia [None]
  - Axillary vein thrombosis [None]
  - Pleural effusion [None]
  - Infusion site extravasation [None]
  - Compartment syndrome [None]
  - Brachiocephalic vein thrombosis [None]
  - Thrombophlebitis superficial [None]

NARRATIVE: CASE EVENT DATE: 20190117
